FAERS Safety Report 6000367-7 (Version None)
Quarter: 2008Q4

REPORT INFORMATION
  Report Type: 
  Country: None (occurrence: None)
  Receive Date: 20081211
  Receipt Date: 20081211
  Transmission Date: 20090506
  Serious: Yes (Hospitalization)
  Sender: FDA-Public Use
  Company Number: None

PATIENT
  Sex: Female
  Weight: 60.782 kg

DRUGS (7)
  1. OMNIPAQUE 300 [Suspect]
     Indication: SPINAL DEFORMITY
     Dosage: 10 ML ONCE IT
     Route: 038
     Dates: start: 20081031, end: 20081031
  2. XANAX [Concomitant]
  3. BACLOFEN [Concomitant]
  4. MIDRIN [Concomitant]
  5. ATENOLOL [Concomitant]
  6. PHENERGAN HCL [Concomitant]
  7. HYDROCHLOROTHIAZIDE [Concomitant]

REACTIONS (2)
  - MENINGITIS [None]
  - PAIN [None]
